FAERS Safety Report 9459552 (Version 1)
Quarter: 2013Q3

REPORT INFORMATION
  Report Type: Spontaneous
  Country: US (occurrence: US)
  Receive Date: 20130815
  Receipt Date: 20130815
  Transmission Date: 20140515
  Serious: No
  Sender: FDA-Public Use
  Company Number: US-PFIZER INC-2013233018

PATIENT
  Sex: Male

DRUGS (1)
  1. TOVIAZ [Suspect]
     Indication: AUTOMATIC BLADDER
     Dosage: 8 MG, UNK
     Dates: start: 20130808

REACTIONS (3)
  - Dry mouth [Not Recovered/Not Resolved]
  - Tongue disorder [Not Recovered/Not Resolved]
  - Dysgeusia [Not Recovered/Not Resolved]
